FAERS Safety Report 7465494-6 (Version None)
Quarter: 2011Q2

REPORT INFORMATION
  Report Type: 
  Country: None (occurrence: None)
  Receive Date: 20110428
  Receipt Date: 20110413
  Transmission Date: 20111010
  Serious: Yes (Other)
  Sender: FDA-Public Use
  Company Number: D1101879

PATIENT
  Age: 55 Year
  Sex: Female

DRUGS (3)
  1. BENADRYL [Suspect]
     Indication: MUSCLE TIGHTNESS
     Dosage: 1 IN ONCE, INTRAVENOUS
     Route: 042
     Dates: start: 20110303, end: 20110303
  2. BACLOFEN [Suspect]
     Indication: MUSCULOSKELETAL STIFFNESS
     Dosage: 2 IN 1 D, ORAL
     Route: 048
     Dates: start: 20110228, end: 20110303
  3. SYNTHROID [Concomitant]

REACTIONS (6)
  - HEADACHE [None]
  - TRISMUS [None]
  - THROAT TIGHTNESS [None]
  - HYPOAESTHESIA [None]
  - TREMOR [None]
  - GENERALISED ERYTHEMA [None]
